FAERS Safety Report 13984030 (Version 1)
Quarter: 2017Q3

REPORT INFORMATION
  Report Type: Spontaneous
  Country: US (occurrence: US)
  Receive Date: 20170918
  Receipt Date: 20170918
  Transmission Date: 20171128
  Serious: No
  Sender: FDA-Public Use
  Company Number: US-TEVA-780243ACC

PATIENT
  Sex: Female

DRUGS (1)
  1. DORZOLAMIDE W/TIMOLOL [Suspect]
     Active Substance: DORZOLAMIDE HYDROCHLORIDE\TIMOLOL MALEATE
     Dosage: 2/0.5% OPH SOL 10ML

REACTIONS (3)
  - Eye irritation [Unknown]
  - Eye pain [Unknown]
  - Wrong technique in product usage process [Unknown]
